FAERS Safety Report 7537570-0 (Version None)
Quarter: 2011Q2

REPORT INFORMATION
  Report Type: 
  Country: None (occurrence: None)
  Receive Date: 20110609
  Receipt Date: 20110601
  Transmission Date: 20111010
  Serious: Yes (Other)
  Sender: FDA-Public Use
  Company Number: US-AMGEN-USASP2011020516

PATIENT
  Age: 46 Year
  Sex: Female

DRUGS (3)
  1. ENBREL [Suspect]
     Indication: RHEUMATOID ARTHRITIS
     Dosage: 50 MG, QWK
     Dates: start: 20110410
  2. METHOTREXATE [Concomitant]
  3. ENBREL [Suspect]
     Dosage: 50 MG, QWK
     Dates: start: 20101225, end: 20110201

REACTIONS (5)
  - CEREBROVASCULAR ACCIDENT [None]
  - FALL [None]
  - DIZZINESS [None]
  - JAW DISORDER [None]
  - GAIT DISTURBANCE [None]
